FAERS Safety Report 19846022 (Version 1)
Quarter: 2021Q3

REPORT INFORMATION
  Report Type: Spontaneous
  Country: CN (occurrence: CN)
  Receive Date: 20210916
  Receipt Date: 20210916
  Transmission Date: 20211014
  Serious: Yes (Hospitalization)
  Sender: FDA-Public Use
  Company Number: CN-BAXTER-2021BAX024280

PATIENT
  Age: 68 Year
  Sex: Female
  Weight: 67 kg

DRUGS (4)
  1. SODIUM CHLORIDE PHYSIOLOGICAL SOLUTION [Suspect]
     Active Substance: SODIUM CHLORIDE
     Dosage: USE AS DILUENT FOR AZATHIOPRINE
     Route: 041
     Dates: start: 20200921, end: 20200921
  2. ENDOXAN [Suspect]
     Active Substance: CYCLOPHOSPHAMIDE
     Indication: BREAST CANCER
     Dosage: DILUTED WITH 50ML OF 0.9% SODIUM CHLORIDE
     Route: 041
     Dates: start: 20200921, end: 20200921
  3. AZATHIOPRINE. [Suspect]
     Active Substance: AZATHIOPRINE
     Indication: BREAST CANCER
     Route: 041
     Dates: start: 20200921, end: 20200921
  4. SODIUM CHLORIDE PHYSIOLOGICAL SOLUTION [Suspect]
     Active Substance: SODIUM CHLORIDE
     Indication: MEDICATION DILUTION
     Dosage: USE AS DILUENT FOR ENDOXAN
     Route: 041
     Dates: start: 20200921, end: 20200921

REACTIONS (2)
  - Asthenia [Recovered/Resolved]
  - Myelosuppression [Recovered/Resolved]

NARRATIVE: CASE EVENT DATE: 20200926
